FAERS Safety Report 21687319 (Version 3)
Quarter: 2023Q1

REPORT INFORMATION
  Report Type: Spontaneous
  Country: JP (occurrence: JP)
  Receive Date: 20221206
  Receipt Date: 20230224
  Transmission Date: 20230418
  Serious: Yes (Other)
  Sender: FDA-Public Use
  Company Number: None

PATIENT

DRUGS (12)
  1. NUCALA [Suspect]
     Active Substance: MEPOLIZUMAB
     Indication: Asthma
     Dosage: 100 MG EVERY 4 WEEKS
     Route: 058
     Dates: start: 20220304
  2. TRELEGY ELLIPTA [Concomitant]
     Active Substance: FLUTICASONE FUROATE\UMECLIDINIUM BROMIDE\VILANTEROL TRIFENATATE
     Indication: Asthma
     Dosage: 100 UG, QD
     Route: 055
     Dates: start: 20221014
  3. MONTELUKAST SODIUM [Concomitant]
     Active Substance: MONTELUKAST SODIUM
     Indication: Asthma
     Dosage: 1 DF, 1D
     Route: 048
     Dates: start: 20220724
  4. TULOBUTEROL TAPE [Concomitant]
     Indication: Asthma
     Dosage: 1 DF, 1D
     Route: 050
     Dates: start: 20181101
  5. WARFARIN POTASSIUM [Concomitant]
     Active Substance: WARFARIN POTASSIUM
     Indication: Aortic valve incompetence
     Dosage: 4 MG, 1D
     Route: 048
  6. WARFARIN POTASSIUM [Concomitant]
     Active Substance: WARFARIN POTASSIUM
     Dosage: 3 MG, 1D
     Route: 048
  7. HYDROCHLOROTHIAZIDE\TELMISARTAN [Concomitant]
     Active Substance: HYDROCHLOROTHIAZIDE\TELMISARTAN
     Indication: Hypertension
     Dosage: 1 DF, 1D
     Route: 048
  8. OMEPRAL TABLETS [Concomitant]
     Indication: Gastrooesophageal reflux disease
     Dosage: 20 MG, 1D
     Route: 048
  9. CALBLOCK TABLETS [Concomitant]
     Indication: Hypertension
     Dosage: 16 MG, 1D
     Route: 048
  10. TOPILORIC TABLETS [Concomitant]
     Indication: Hyperuricaemia
     Dosage: 40 MG, 1D
     Route: 048
     Dates: start: 20190417
  11. PREDONINE [Concomitant]
     Active Substance: PREDNISOLONE
     Indication: Raynaud^s phenomenon
     Dosage: 10 MG
     Route: 048
  12. PREDONINE [Concomitant]
     Active Substance: PREDNISOLONE
     Dosage: 10 MG, 1D
     Route: 048

REACTIONS (4)
  - Raynaud^s phenomenon [Recovered/Resolved]
  - Scleroderma [Unknown]
  - Subdural haematoma [Unknown]
  - Constipation [Unknown]

NARRATIVE: CASE EVENT DATE: 20220606
